FAERS Safety Report 17948540 (Version 2)
Quarter: 2020Q2

REPORT INFORMATION
  Report Type: Spontaneous
  Country: US (occurrence: US)
  Receive Date: 20200626
  Receipt Date: 20200630
  Transmission Date: 20200714
  Serious: Yes (Other)
  Sender: FDA-Public Use
  Company Number: US-PFIZER INC-2020243124

PATIENT
  Age: 58 Year

DRUGS (1)
  1. ERYTHROMYCIN. [Suspect]
     Active Substance: ERYTHROMYCIN
     Indication: PNEUMONIA
     Dosage: UNK

REACTIONS (4)
  - Clostridium difficile infection [Recovered/Resolved]
  - Ascites [Recovered/Resolved]
  - Diarrhoea [Unknown]
  - Abdominal distension [Unknown]
